FAERS Safety Report 19250293 (Version 2)
Quarter: 2021Q4

REPORT INFORMATION
  Report Type: Spontaneous
  Country: ES (occurrence: ES)
  Receive Date: 20210513
  Receipt Date: 20211215
  Transmission Date: 20220303
  Serious: Yes (Hospitalization, Other)
  Sender: FDA-Public Use
  Company Number: ES-AEMPS-839287

PATIENT
  Age: 83 Year
  Sex: Male

DRUGS (2)
  1. HYDROCHLOROTHIAZIDE\LOSARTAN [Suspect]
     Active Substance: HYDROCHLOROTHIAZIDE\LOSARTAN
     Indication: Hypertension
     Dosage: 1 DOSAGE FORM, 1-0-0
     Route: 048
     Dates: start: 20190625
  2. BETAHISTINA AUROVITAS 16 MG COMPRIMIDOS EFG , 30 comprimidos [Concomitant]
     Indication: Vertigo
     Dosage: 1-0-0
     Route: 048
     Dates: start: 20190514, end: 20210320

REACTIONS (1)
  - Pancreatitis acute [Recovered/Resolved]

NARRATIVE: CASE EVENT DATE: 20210320
